FAERS Safety Report 4771632-6 (Version None)
Quarter: 2005Q3

REPORT INFORMATION
  Report Type: 
  Country: None (occurrence: None)
  Receive Date: 20050916
  Receipt Date: 20050912
  Transmission Date: 20060218
  Serious: Yes (Life-Threatening, Hospitalization)
  Sender: FDA-Public Use
  Company Number: PHBS2005CA13468

PATIENT
  Age: 63 Year
  Sex: Female

DRUGS (1)
  1. CLOZARIL [Suspect]
     Dosage: 225 MG/D
     Route: 048

REACTIONS (1)
  - CEREBROVASCULAR ACCIDENT [None]
